FAERS Safety Report 15625578 (Version 2)
Quarter: 2018Q4

REPORT INFORMATION
  Report Type: Report from Study
  Country: BE (occurrence: BE)
  Receive Date: 20181116
  Receipt Date: 20181116
  Transmission Date: 20190205
  Serious: Yes (Other)
  Sender: FDA-Public Use
  Company Number: PHHY2015BE120770

PATIENT
  Age: 38 Year
  Sex: Female

DRUGS (3)
  1. D-CURE [Concomitant]
     Active Substance: CHOLECALCIFEROL
     Indication: PROPHYLAXIS
     Route: 065
     Dates: start: 20150226
  2. GILENYA [Suspect]
     Active Substance: FINGOLIMOD HYDROCHLORIDE
     Indication: MULTIPLE SCLEROSIS
     Dosage: UNK, QD
     Route: 048
     Dates: start: 20140908, end: 20150101
  3. TEGRETOL [Concomitant]
     Active Substance: CARBAMAZEPINE
     Indication: NEURALGIA
     Route: 065
     Dates: start: 20150226

REACTIONS (12)
  - Hypertension [Unknown]
  - Tachycardia [Unknown]
  - Migraine [Unknown]
  - Dry eye [Recovered/Resolved]
  - Hypercholesterolaemia [Unknown]
  - Lymphopenia [Recovered/Resolved]
  - Alanine aminotransferase increased [Unknown]
  - Macular oedema [Unknown]
  - Gamma-glutamyltransferase increased [Unknown]
  - White blood cell count decreased [Recovered/Resolved]
  - Hypertriglyceridaemia [Unknown]
  - Epistaxis [Recovered/Resolved]

NARRATIVE: CASE EVENT DATE: 20141017
